FAERS Safety Report 9087468 (Version 1)
Quarter: 2013Q1

REPORT INFORMATION
  Report Type: Spontaneous
  Country: GB (occurrence: GB)
  Receive Date: 20130217
  Receipt Date: 20130217
  Transmission Date: 20140127
  Serious: Yes (Disabling, Other)
  Sender: FDA-Public Use
  Company Number: GB-TEVA-385073ISR

PATIENT
  Age: 45 Year
  Sex: Female
  Weight: 85 kg

DRUGS (10)
  1. PREDNISOLONE [Suspect]
     Route: 048
     Dates: start: 20121102, end: 20121130
  2. PREDNISOLONE [Suspect]
     Route: 048
     Dates: start: 20121130, end: 20121231
  3. PREDNISOLONE [Suspect]
     Route: 048
     Dates: start: 20121231, end: 20130127
  4. AMITRIPTYLINE [Concomitant]
     Dosage: AT NIGHT
  5. LANSOPRAZOLE [Concomitant]
  6. CLARITHROMYCIN [Concomitant]
     Indication: HERPES ZOSTER
  7. ACICLOVIR [Concomitant]
     Indication: HERPES ZOSTER
  8. NYSTAN [Concomitant]
  9. CLENIL MODULITE [Concomitant]
     Dosage: 100MCG- 2 PUFFS BD
     Route: 055
  10. VENTOLIN [Concomitant]
     Indication: LOWER RESPIRATORY TRACT INFECTION
     Dosage: 100MCG- 2 PUFFS WHEN REQUIRED
     Route: 055

REACTIONS (15)
  - Cushing^s syndrome [Not Recovered/Not Resolved]
  - Asthenia [Not Recovered/Not Resolved]
  - Depressed mood [Not Recovered/Not Resolved]
  - Insomnia [Not Recovered/Not Resolved]
  - Headache [Not Recovered/Not Resolved]
  - Diarrhoea [Not Recovered/Not Resolved]
  - Malaise [Not Recovered/Not Resolved]
  - Mood swings [Not Recovered/Not Resolved]
  - Decreased appetite [Not Recovered/Not Resolved]
  - Hyperhidrosis [Not Recovered/Not Resolved]
  - Tearfulness [Not Recovered/Not Resolved]
  - Cushingoid [Not Recovered/Not Resolved]
  - Fatigue [Not Recovered/Not Resolved]
  - Blood glucose increased [Unknown]
  - Polymyalgia rheumatica [Unknown]
